FAERS Safety Report 13664288 (Version 2)
Quarter: 2017Q2

REPORT INFORMATION
  Report Type: Spontaneous
  Country: US (occurrence: US)
  Receive Date: 20170619
  Receipt Date: 20170622
  Transmission Date: 20170830
  Serious: Yes (Hospitalization, Other)
  Sender: FDA-Public Use
  Company Number: US-PFIZER INC-2017260916

PATIENT
  Age: 2 Year
  Sex: Male

DRUGS (2)
  1. GENOTROPIN [Suspect]
     Active Substance: SOMATROPIN
     Indication: BODY HEIGHT BELOW NORMAL
  2. GENOTROPIN [Suspect]
     Active Substance: SOMATROPIN
     Indication: MULTIPLE CONGENITAL ABNORMALITIES
     Dosage: 0.3 MG, DAILY
     Route: 058
     Dates: start: 201606

REACTIONS (5)
  - Silver-Russell syndrome [Unknown]
  - Malaise [Unknown]
  - Hypoglycaemia [Unknown]
  - Weight decreased [Unknown]
  - Blood glucose abnormal [Unknown]
